FAERS Safety Report 8988289 (Version 2)
Quarter: 2013Q1

REPORT INFORMATION
  Report Type: Spontaneous
  Country: US (occurrence: US)
  Receive Date: 20121227
  Receipt Date: 20130107
  Transmission Date: 20140127
  Serious: Yes (Other)
  Sender: FDA-Public Use
  Company Number: US-UCBSA-058872

PATIENT
  Age: 68 Year
  Sex: Female
  Weight: 81.5 kg

DRUGS (4)
  1. VIMPAT [Suspect]
     Indication: CONVULSION
     Dosage: AT BEDTIME
  2. VIMPAT [Suspect]
     Indication: CONVULSION
     Dosage: STRENGTH: 150 MG AND 50 MG
  3. LAMICTAL [Concomitant]
  4. PHENOBARB [Concomitant]
     Dosage: DOSE 1: 100 MG, DOSE 2: 60 MG, FREQUENCY: DAILY
     Dates: start: 1980

REACTIONS (2)
  - Epilepsy [Unknown]
  - Urinary retention [Recovered/Resolved]
